FAERS Safety Report 6934836-X (Version None)
Quarter: 2010Q3

REPORT INFORMATION
  Report Type: 
  Country: None (occurrence: None)
  Receive Date: 20100820
  Receipt Date: 20100806
  Transmission Date: 20110219
  Serious: Yes (Other)
  Sender: FDA-Public Use
  Company Number: PHHY2010US51860

PATIENT
  Sex: Female

DRUGS (1)
  1. GENTEAL MODERATE LUBRICANT EYE DROPS (NVO) [Suspect]
     Dosage: ONE DROP
     Route: 047

REACTIONS (6)
  - BLINDNESS TRANSIENT [None]
  - DRY EYE [None]
  - EYE OEDEMA [None]
  - EYE PAIN [None]
  - OCULAR DISCOMFORT [None]
  - VISION BLURRED [None]
